FAERS Safety Report 4275020-0 (Version None)
Quarter: 2004Q1

REPORT INFORMATION
  Report Type: 
  Country: None (occurrence: None)
  Receive Date: 20040116
  Receipt Date: 20040108
  Transmission Date: 20041129
  Serious: Yes (Other)
  Sender: FDA-Public Use
  Company Number: 204104

PATIENT
  Age: 43 Year
  Sex: Female
  Weight: 53 kg

DRUGS (1)
  1. RITUXAN [Suspect]
     Indication: NON-HODGKIN'S LYMPHOMA
     Dosage: 550 MG, 1/WEEK, INT CORP CAVER
     Dates: start: 20030708, end: 20030729

REACTIONS (6)
  - ASTHENIA [None]
  - ERYTHEMA NODOSUM [None]
  - OEDEMA PERIPHERAL [None]
  - PAIN [None]
  - PANNICULITIS [None]
  - RASH ERYTHEMATOUS [None]
